FAERS Safety Report 13374029 (Version 1)
Quarter: 2017Q1

REPORT INFORMATION
  Report Type: Spontaneous
  Country: US (occurrence: US)
  Receive Date: 20170327
  Receipt Date: 20170327
  Transmission Date: 20170429
  Serious: No
  Sender: FDA-Public Use
  Company Number: US-009507513-1703USA011165

PATIENT
  Age: 39 Year
  Sex: Female

DRUGS (12)
  1. AMPHOTERICIN B. [Suspect]
     Active Substance: AMPHOTERICIN B
     Indication: FUNGAEMIA
     Dosage: UNK
     Dates: start: 20141215
  2. CYCLOSPORINE. [Concomitant]
     Active Substance: CYCLOSPORINE
     Indication: GRAFT VERSUS HOST DISEASE IN GASTROINTESTINAL TRACT
  3. ANTILYMPHOCYTE IMMUNOGLOBULIN [Concomitant]
     Active Substance: THYMOCYTE IMMUNE GLOBULIN NOS
     Indication: GRAFT VERSUS HOST DISEASE IN GASTROINTESTINAL TRACT
  4. VORICONAZOLE. [Suspect]
     Active Substance: VORICONAZOLE
     Indication: FUNGAEMIA
     Dosage: UNK
     Route: 042
     Dates: start: 20141215, end: 20141215
  5. MICAFUNGIN [Suspect]
     Active Substance: MICAFUNGIN
     Indication: FUNGAEMIA
     Dosage: UNK
     Dates: start: 201412
  6. VORICONAZOLE. [Suspect]
     Active Substance: VORICONAZOLE
     Indication: TRICHOSPORON INFECTION
     Dosage: UNK
     Route: 042
     Dates: start: 20141224
  7. ANTILYMPHOCYTE IMMUNOGLOBULIN [Concomitant]
     Active Substance: THYMOCYTE IMMUNE GLOBULIN NOS
     Indication: ACUTE GRAFT VERSUS HOST DISEASE IN SKIN
     Dosage: UNK
     Dates: start: 20141211
  8. CYCLOSPORINE. [Concomitant]
     Active Substance: CYCLOSPORINE
     Indication: ACUTE GRAFT VERSUS HOST DISEASE IN SKIN
     Dosage: UNK
     Route: 042
     Dates: start: 201412
  9. MICAFUNGIN [Suspect]
     Active Substance: MICAFUNGIN
     Indication: TRICHOSPORON INFECTION
  10. AMPHOTERICIN B. [Suspect]
     Active Substance: AMPHOTERICIN B
     Indication: TRICHOSPORON INFECTION
  11. NOXAFIL [Suspect]
     Active Substance: POSACONAZOLE
     Indication: TRICHOSPORON INFECTION
  12. NOXAFIL [Suspect]
     Active Substance: POSACONAZOLE
     Indication: FUNGAEMIA
     Dosage: UNK
     Route: 048
     Dates: start: 20141216, end: 20141223

REACTIONS (1)
  - Drug effect incomplete [Unknown]
